FAERS Safety Report 8156678-2 (Version None)
Quarter: 2012Q1

REPORT INFORMATION
  Report Type: 
  Country: None (occurrence: None)
  Receive Date: 20120222
  Receipt Date: 20120213
  Transmission Date: 20120608
  Serious: Yes (Hospitalization)
  Sender: FDA-Public Use
  Company Number: FI-BAXTER-2012BH004527

PATIENT
  Age: 31 Year
  Sex: Male

DRUGS (7)
  1. ADRIAMYCIN PFS [Concomitant]
     Indication: LYMPHOMA
     Route: 042
     Dates: start: 20111201, end: 20111202
  2. DEXAMETASON [Concomitant]
     Indication: LYMPHOMA
     Route: 048
     Dates: start: 20111201, end: 20111203
  3. ONCOVIN [Concomitant]
     Indication: LYMPHOMA
     Route: 042
     Dates: start: 20111201, end: 20111201
  4. IFOSFAMIDE [Suspect]
     Indication: LYMPHOMA
     Route: 042
     Dates: start: 20111201, end: 20111203
  5. PRIMPERAN TAB [Concomitant]
     Indication: LYMPHOMA
     Route: 048
     Dates: start: 20111201, end: 20111203
  6. UROMITEXAN [Concomitant]
     Indication: LYMPHOMA
     Route: 042
     Dates: start: 20111201, end: 20111203
  7. KYTRIL [Concomitant]
     Indication: LYMPHOMA
     Route: 048
     Dates: start: 20111201, end: 20111203

REACTIONS (4)
  - DISORIENTATION [None]
  - URINARY INCONTINENCE [None]
  - SPEECH DISORDER [None]
  - FAECAL INCONTINENCE [None]
